FAERS Safety Report 8476195-X (Version None)
Quarter: 2012Q2

REPORT INFORMATION
  Report Type: 
  Country: None (occurrence: None)
  Receive Date: 20120622
  Receipt Date: 20120613
  Transmission Date: 20120825
  Serious: Yes (Hospitalization)
  Sender: FDA-Public Use
  Company Number: DSA_57713_2012

PATIENT
  Sex: Female

DRUGS (8)
  1. BUPROPION HYDROCHLORIDE [Suspect]
     Indication: DEPRESSION
     Dosage: (300 MG QD ORAL), (150 MG QD ORAL)
     Route: 048
     Dates: start: 20120418, end: 20120427
  2. BUPROPION HYDROCHLORIDE [Suspect]
     Indication: DEPRESSION
     Dosage: (300 MG QD ORAL), (150 MG QD ORAL)
     Route: 048
     Dates: start: 20120410, end: 20120417
  3. BUPROPION HYDROCHLORIDE [Suspect]
     Indication: DEPRESSION
     Dosage: (300 MG QD ORAL), (150 MG QD ORAL)
     Route: 048
     Dates: start: 20120428, end: 20120522
  4. DICLOFENAC SODIUM [Concomitant]
  5. PANTOPRAZOLE [Concomitant]
  6. MIRTAZAPINE [Concomitant]
  7. LITHIUM CARBONATE [Concomitant]
  8. PIPAMPERONE [Concomitant]

REACTIONS (12)
  - ANGIOMYOLIPOMA [None]
  - DIARRHOEA [None]
  - BLOOD ALKALINE PHOSPHATASE INCREASED [None]
  - JAUNDICE [None]
  - PYREXIA [None]
  - DECREASED APPETITE [None]
  - NAUSEA [None]
  - GAMMA-GLUTAMYLTRANSFERASE INCREASED [None]
  - DIZZINESS [None]
  - CONFUSIONAL STATE [None]
  - CHOLELITHIASIS [None]
  - COLITIS ISCHAEMIC [None]
